FAERS Safety Report 7555525-7 (Version None)
Quarter: 2011Q2

REPORT INFORMATION
  Report Type: 
  Country: None (occurrence: None)
  Receive Date: 20110617
  Receipt Date: 20031104
  Transmission Date: 20111010
  Serious: Yes (Hospitalization, Other)
  Sender: FDA-Public Use
  Company Number: PHEH2003US06762

PATIENT
  Age: 82 Year
  Sex: Female

DRUGS (8)
  1. EXELON [Suspect]
     Dosage: 6 MG, BID
     Route: 048
  2. NORVASC [Concomitant]
     Indication: CARDIAC FAILURE CONGESTIVE
     Dosage: UNK
  3. COREG [Concomitant]
     Indication: CARDIAC FAILURE CONGESTIVE
     Dosage: UNK
  4. HYDROCHLOROTHIAZIDE [Concomitant]
     Dosage: UNK
  5. MONOPRIL [Concomitant]
     Indication: CARDIAC FAILURE CONGESTIVE
     Dosage: UNK
  6. RISPERDAL [Concomitant]
     Indication: ANXIETY
     Dosage: UNK
  7. EXELON [Suspect]
     Indication: DEMENTIA ALZHEIMER'S TYPE
     Dosage: 1.5 MG, BID
     Route: 048
     Dates: start: 20030701
  8. ZOLOFT [Concomitant]
     Indication: DEPRESSION
     Dosage: UNK

REACTIONS (9)
  - HYPERTENSION [None]
  - OEDEMA PERIPHERAL [None]
  - FACIAL PAIN [None]
  - DYSPNOEA [None]
  - SWELLING FACE [None]
  - TACHYCARDIA [None]
  - ARRHYTHMIA [None]
  - CARDIAC FAILURE CONGESTIVE [None]
  - PULMONARY OEDEMA [None]
